FAERS Safety Report 16260425 (Version 2)
Quarter: 2019Q2

REPORT INFORMATION
  Report Type: Spontaneous
  Country: DE (occurrence: DE)
  Receive Date: 20190501
  Receipt Date: 20190501
  Transmission Date: 20190711
  Serious: Yes (Hospitalization, Other)
  Sender: FDA-Public Use
  Company Number: PHHY2019DE095632

PATIENT
  Sex: Female

DRUGS (12)
  1. METFORMIN [Concomitant]
     Active Substance: METFORMIN HYDROCHLORIDE
     Indication: TYPE 2 DIABETES MELLITUS
     Dosage: 1000 MG, QD
     Route: 048
  2. PEGFILGRASTIM [Suspect]
     Active Substance: PEGFILGRASTIM
     Indication: B-CELL LYMPHOMA
     Dosage: 6 MG, Q2W (FOR 74 DAYS)
     Route: 058
     Dates: start: 20160615, end: 20160827
  3. ASPIRIN. [Concomitant]
     Active Substance: ASPIRIN
     Indication: AORTIC STENOSIS
     Dosage: 100 MG, QD
     Route: 048
  4. SIMVASTATIN. [Concomitant]
     Active Substance: SIMVASTATIN
     Indication: BLOOD CHOLESTEROL DECREASED
     Dosage: 80 MG, UNK (80 MILLIGRAM (0-0-1/2))
     Route: 048
  5. RITUXIMAB. [Suspect]
     Active Substance: RITUXIMAB
     Indication: B-CELL LYMPHOMA
     Dosage: 678 MG, Q2W
     Route: 042
     Dates: start: 20160615
  6. ASPIRIN. [Concomitant]
     Active Substance: ASPIRIN
     Indication: ANTIPLATELET THERAPY
     Dosage: UNK
     Route: 065
  7. CYCLOPHOSPHAMIDE. [Suspect]
     Active Substance: CYCLOPHOSPHAMIDE
     Indication: B-CELL LYMPHOMA
     Dosage: 1357 MG, Q2W (FOR 72 DAYS)
     Route: 042
     Dates: start: 20160615, end: 20160825
  8. BISOPROLOL [Concomitant]
     Active Substance: BISOPROLOL
     Indication: HYPERTENSION
     Dosage: 5 MG, QD
     Route: 048
  9. DOXORUBICIN [Suspect]
     Active Substance: DOXORUBICIN
     Indication: B-CELL LYMPHOMA
     Dosage: 90 MG, Q2W (FOR 72 DAYS)
     Route: 042
     Dates: start: 20160615, end: 20160825
  10. VINCRISTINE [Suspect]
     Active Substance: VINCRISTINE
     Indication: B-CELL LYMPHOMA
     Dosage: 2 MG/M2, Q2W (FOR 1 DAY)
     Route: 042
     Dates: start: 20160615, end: 20160615
  11. PREDNISOLONE. [Suspect]
     Active Substance: PREDNISOLONE
     Indication: B-CELL LYMPHOMA
     Dosage: 100 MG, UNK ( (DAY 1-5 FOR 75 DAYS))
     Route: 048
     Dates: start: 20160615, end: 20160828
  12. INSULIN ASPART [Concomitant]
     Active Substance: INSULIN ASPART
     Indication: TYPE 2 DIABETES MELLITUS
     Dosage: UNK (AS NECESSARY, 20-14- 10 IE)
     Route: 058

REACTIONS (6)
  - Left ventricular hypertrophy [Unknown]
  - Varicose vein [Unknown]
  - Deep vein thrombosis [Unknown]
  - Pulmonary embolism [Recovered/Resolved]
  - Thrombophlebitis [Unknown]
  - Neutropenia [Unknown]

NARRATIVE: CASE EVENT DATE: 2016
